FAERS Safety Report 12681499 (Version 2)
Quarter: 2016Q3

REPORT INFORMATION
  Report Type: Spontaneous
  Country: JP (occurrence: JP)
  Receive Date: 20160824
  Receipt Date: 20160906
  Transmission Date: 20161109
  Serious: Yes (Hospitalization)
  Sender: FDA-Public Use
  Company Number: JP-SUCAMPO PHARMACEUTICALS, INC.-SPI201600906

PATIENT
  Age: 82 Year
  Sex: Male

DRUGS (9)
  1. MICAMLO [Concomitant]
     Active Substance: AMLODIPINE BESYLATE\TELMISARTAN
     Dosage: UNK
     Route: 048
     Dates: start: 201411
  2. MAGMITT [Concomitant]
     Active Substance: MAGNESIUM OXIDE
     Dosage: UNK, BID
     Route: 048
     Dates: start: 20160728
  3. MAGMITT [Concomitant]
     Active Substance: MAGNESIUM OXIDE
     Indication: ABDOMINAL DISTENSION
     Dosage: UNK
     Route: 048
     Dates: start: 201411
  4. UNKNOWN [Concomitant]
     Active Substance: UNSPECIFIED INGREDIENT
     Dosage: UNK
     Route: 048
     Dates: start: 201411
  5. EQUA [Concomitant]
     Active Substance: VILDAGLIPTIN
     Dosage: UNK
     Route: 048
     Dates: start: 201411
  6. PREDONINE [Concomitant]
     Active Substance: PREDNISOLONE\PREDNISOLONE ACETATE\PREDNISOLONE SODIUM SUCCINATE
     Indication: PEMPHIGOID
     Dosage: UNK
     Dates: start: 201606
  7. AMITIZA [Suspect]
     Active Substance: LUBIPROSTONE
     Indication: CONSTIPATION
     Dosage: 24 MCG, QD
     Route: 048
     Dates: start: 20151022, end: 20160113
  8. UNKNOWN [Concomitant]
     Active Substance: UNSPECIFIED INGREDIENT
     Indication: PRODUCTIVE COUGH
     Dosage: UNK
     Route: 048
     Dates: start: 201411
  9. AMITIZA [Suspect]
     Active Substance: LUBIPROSTONE
     Dosage: UNK
     Route: 048
     Dates: start: 20160114

REACTIONS (2)
  - Volvulus [Recovered/Resolved]
  - Abdominal distension [Recovered/Resolved]

NARRATIVE: CASE EVENT DATE: 20160724
